FAERS Safety Report 7249133-5 (Version None)
Quarter: 2011Q1

REPORT INFORMATION
  Report Type: 
  Country: None (occurrence: None)
  Receive Date: 20110128
  Receipt Date: 20101130
  Transmission Date: 20110831
  Serious: Yes (Hospitalization, Other)
  Sender: FDA-Public Use
  Company Number: FR-BAYER-201041493GPV

PATIENT
  Sex: Female

DRUGS (12)
  1. PREVISCAN [Interacting]
     Dosage: 20 MG, UNK
     Route: 048
     Dates: start: 20030101, end: 20100824
  2. CIFLOX [Suspect]
     Indication: PRODUCT USED FOR UNKNOWN INDICATION
     Dosage: AS USED DOSE: 400/200 MG/ML
     Route: 042
     Dates: start: 20100822, end: 20100825
  3. FUROSEMIDA [Concomitant]
  4. SPECIAFOLDINE [Concomitant]
  5. ISOPTIN [Concomitant]
  6. FLAGYL [Interacting]
     Dosage: 500 MG, TID
     Dates: start: 20100822, end: 20100906
  7. CRESTOR [Concomitant]
  8. MOPRAL [Concomitant]
  9. TIORFAN [Concomitant]
  10. ATARAX [Concomitant]
  11. ALLOPURINOL [Concomitant]
  12. KALEORID [Concomitant]

REACTIONS (3)
  - INTERNATIONAL NORMALISED RATIO INCREASED [None]
  - CYTOLYTIC HEPATITIS [None]
  - OVERDOSE [None]
